FAERS Safety Report 4975006-4 (Version None)
Quarter: 2006Q2

REPORT INFORMATION
  Report Type: 
  Country: None (occurrence: None)
  Receive Date: 20060414
  Receipt Date: 20060414
  Transmission Date: 20061013
  Serious: Yes (Life-Threatening)
  Sender: FDA-Public Use
  Company Number: None

PATIENT
  Sex: Male

DRUGS (1)
  1. LINEZOLID [Suspect]
     Indication: SEPSIS
     Dosage: 600 MG  Q12H   IV
     Route: 042
     Dates: start: 20060330, end: 20060403

REACTIONS (1)
  - THROMBOCYTOPENIA [None]
